FAERS Safety Report 13588953 (Version 3)
Quarter: 2017Q2

REPORT INFORMATION
  Report Type: Spontaneous
  Country: US (occurrence: US)
  Receive Date: 20170529
  Receipt Date: 20170629
  Transmission Date: 20170830
  Serious: Yes (Death, Hospitalization)
  Sender: FDA-Public Use
  Company Number: US-TAIHO ONCOLOGY INC-EU-2017-00815

PATIENT
  Age: 62 Year
  Sex: Male

DRUGS (6)
  1. AMLODIPINE [Concomitant]
     Active Substance: AMLODIPINE BESYLATE
     Dosage: NI
  2. TAMSULOSIN [Concomitant]
     Active Substance: TAMSULOSIN
     Dosage: NI
  3. LONSURF [Suspect]
     Active Substance: TIPIRACIL HYDROCHLORIDE\TRIFLURIDINE
     Indication: RECTAL ADENOCARCINOMA
     Route: 048
     Dates: start: 20170331, end: 20170401
  4. ONDANSETRON [Concomitant]
     Active Substance: ONDANSETRON
     Dosage: NI
  5. MS CONTIN [Concomitant]
     Active Substance: MORPHINE SULFATE
     Dosage: NI
  6. OXYCODONE [Concomitant]
     Active Substance: OXYCODONE
     Dosage: NI

REACTIONS (2)
  - Diarrhoea [Unknown]
  - Disease progression [Fatal]

NARRATIVE: CASE EVENT DATE: 20170403
